FAERS Safety Report 21225753 (Version 1)
Quarter: 2022Q3

REPORT INFORMATION
  Report Type: Spontaneous
  Country: BE (occurrence: BE)
  Receive Date: 20220818
  Receipt Date: 20220818
  Transmission Date: 20221026
  Serious: Yes (Other)
  Sender: FDA-Public Use
  Company Number: BE-AMGEN-BELSP2022136711

PATIENT
  Age: 59 Year
  Sex: Female

DRUGS (8)
  1. XGEVA [Suspect]
     Active Substance: DENOSUMAB
     Indication: Breast cancer metastatic
     Dosage: MONTHLY BASIS
     Route: 058
     Dates: start: 2016
  2. XGEVA [Suspect]
     Active Substance: DENOSUMAB
     Indication: Metastases to bone
  3. FILGRASTIM [Suspect]
     Active Substance: FILGRASTIM
     Indication: Breast cancer metastatic
     Dosage: UNK
     Route: 065
     Dates: start: 202202
  4. FILGRASTIM [Suspect]
     Active Substance: FILGRASTIM
     Indication: Metastases to bone
  5. GEMCITABINE [Concomitant]
     Active Substance: GEMCITABINE
     Indication: Breast cancer metastatic
     Dosage: UNK
     Route: 065
     Dates: start: 202202
  6. CISPLATIN [Concomitant]
     Active Substance: CISPLATIN
     Indication: Breast cancer metastatic
     Dosage: 70 MILLIGRAM/M2
     Route: 065
     Dates: start: 202202
  7. CALCIUM [Concomitant]
     Active Substance: CALCIUM
     Indication: Breast cancer metastatic
     Dosage: UNK
     Route: 065
  8. VITAMIN D [Concomitant]
     Active Substance: VITAMIN D NOS

REACTIONS (6)
  - Metastases to bone [Unknown]
  - Metastases to liver [Unknown]
  - Metastases to lymph nodes [Unknown]
  - Thrombocytopenia [Recovered/Resolved]
  - Anaemia [Unknown]
  - Diarrhoea [Unknown]

NARRATIVE: CASE EVENT DATE: 20100101
